FAERS Safety Report 7902609 (Version 3)
Quarter: 2014Q1

REPORT INFORMATION
  Report Type: Spontaneous
  Country: IE (occurrence: KE)
  Receive Date: 20110418
  Receipt Date: 20140113
  Transmission Date: 20141002
  Serious: Yes (Disabling, Other)
  Sender: FDA-Public Use
  Company Number: IE-ROCHE-241671

PATIENT
  Sex: Male

DRUGS (1)
  1. LARIAM [Suspect]
     Indication: MALARIA PROPHYLAXIS
     Dosage: THERAPY START DATE: 28/AUG/1996
     Route: 048

REACTIONS (68)
  - Drug hypersensitivity [Unknown]
  - Vestibular neuronitis [Unknown]
  - Brain injury [Unknown]
  - Fatigue [Recovering/Resolving]
  - Fatigue [Not Recovered/Not Resolved]
  - Fatigue [Unknown]
  - Decreased activity [Unknown]
  - Decreased activity [Unknown]
  - Visual impairment [Recovering/Resolving]
  - Impaired driving ability [Unknown]
  - Anxiety disorder [Recovering/Resolving]
  - Generalised anxiety disorder [Unknown]
  - Abnormal dreams [Unknown]
  - Hyperhidrosis [Unknown]
  - Dyspnoea [Unknown]
  - Pallor [Unknown]
  - Headache [Unknown]
  - Dizziness [Unknown]
  - Dissociation [Unknown]
  - Depersonalisation [Unknown]
  - Derealisation [Unknown]
  - Sleep disorder [Unknown]
  - Decreased appetite [Unknown]
  - Libido decreased [Unknown]
  - Photophobia [Unknown]
  - Hearing impaired [Unknown]
  - Insomnia [Unknown]
  - Psychiatric symptom [Unknown]
  - Feeling jittery [Unknown]
  - Restlessness [Unknown]
  - Psychomotor hyperactivity [Unknown]
  - Social avoidant behaviour [Unknown]
  - Panic attack [Unknown]
  - Chills [Unknown]
  - Palpitations [Unknown]
  - Dyskinesia [Unknown]
  - Feeling abnormal [Unknown]
  - Claustrophobia [Unknown]
  - Agoraphobia [Unknown]
  - Hypotension [Unknown]
  - Suffocation feeling [Unknown]
  - Cognitive disorder [Unknown]
  - Disturbance in attention [Unknown]
  - Memory impairment [Unknown]
  - Dissociation [Unknown]
  - Insomnia [Unknown]
  - Dyspnoea [Unknown]
  - Suicidal ideation [Unknown]
  - Alcohol intolerance [Not Recovered/Not Resolved]
  - Dry throat [Recovering/Resolving]
  - Vestibular disorder [Not Recovered/Not Resolved]
  - Vertigo [Unknown]
  - Balance disorder [Unknown]
  - Balance disorder [Unknown]
  - Ataxia [Unknown]
  - Tinnitus [Not Recovered/Not Resolved]
  - Depression [Unknown]
  - Tearfulness [Unknown]
  - Myalgia [Not Recovered/Not Resolved]
  - Arthralgia [Not Recovered/Not Resolved]
  - Restlessness [Not Recovered/Not Resolved]
  - Dizziness [Not Recovered/Not Resolved]
  - Vertigo [Not Recovered/Not Resolved]
  - Insomnia [Recovering/Resolving]
  - Nausea [Recovering/Resolving]
  - Nightmare [Recovering/Resolving]
  - Palpitations [Recovering/Resolving]
  - Hypotension [Recovering/Resolving]
